FAERS Safety Report 15624768 (Version 1)
Quarter: 2018Q4

REPORT INFORMATION
  Report Type: Spontaneous
  Country: CN (occurrence: CN)
  Receive Date: 20181116
  Receipt Date: 20181116
  Transmission Date: 20190205
  Serious: Yes (Death)
  Sender: FDA-Public Use
  Company Number: PHHY2018CN148896

PATIENT
  Age: 60 Year
  Sex: Female

DRUGS (6)
  1. ADALIMUMAB [Suspect]
     Active Substance: ADALIMUMAB
     Indication: ERDHEIM-CHESTER DISEASE
     Dosage: 40 MG, Q2W
     Route: 065
  2. METHYLPREDNISOLONE. [Suspect]
     Active Substance: METHYLPREDNISOLONE
     Dosage: 8 MG, QD
     Route: 065
  3. CYCLOPHOSPHAMIDE. [Suspect]
     Active Substance: CYCLOPHOSPHAMIDE
     Indication: ERDHEIM-CHESTER DISEASE
     Dosage: 0.4 G, QW
     Route: 065
  4. METHYLPREDNISOLONE. [Suspect]
     Active Substance: METHYLPREDNISOLONE
     Dosage: 16 MG, QD
     Route: 065
  5. INTERFERON ALFA NOS [Concomitant]
     Active Substance: INTERFERON ALFA-2A OR INTERFERON ALFA-2B
     Indication: ERDHEIM-CHESTER DISEASE
     Route: 065
  6. METHYLPREDNISOLONE. [Suspect]
     Active Substance: METHYLPREDNISOLONE
     Indication: ERDHEIM-CHESTER DISEASE
     Dosage: 40 MG, QD
     Route: 065

REACTIONS (10)
  - Product use in unapproved indication [Unknown]
  - Pyrexia [Unknown]
  - Abdominal distension [Fatal]
  - Abdominal pain upper [Fatal]
  - Decreased appetite [Fatal]
  - Nausea [Fatal]
  - Asthenia [Fatal]
  - Gastric disorder [Fatal]
  - Lymphocytic infiltration [Fatal]
  - Constipation [Fatal]
